FAERS Safety Report 7577399-0 (Version None)
Quarter: 2011Q2

REPORT INFORMATION
  Report Type: 
  Country: None (occurrence: None)
  Receive Date: 20110628
  Receipt Date: 20100116
  Transmission Date: 20111010
  Serious: Yes (Death, Other)
  Sender: FDA-Public Use
  Company Number: US-BAYER-201011195NA

PATIENT
  Age: 52 Year
  Sex: Male
  Weight: 92 kg

DRUGS (21)
  1. COREG [Concomitant]
  2. LIPITOR [Concomitant]
  3. MIDAZOLAM HCL [Concomitant]
     Dosage: 14 MG, ONCE
     Route: 042
     Dates: start: 20070604, end: 20070604
  4. TRASYLOL [Suspect]
     Dosage: 200ML LOADING DOSE
     Route: 042
     Dates: start: 20070604, end: 20070604
  5. VANCOMYCIN [Concomitant]
     Dosage: UNK
     Dates: start: 20070604
  6. CONTRAST MEDIA [Concomitant]
     Indication: CATHETERISATION CARDIAC
     Dosage: UNK
     Dates: start: 20070604
  7. HEPARIN [Concomitant]
     Dosage: 45000 U, ONCE
     Route: 042
     Dates: start: 20070604, end: 20070604
  8. PROTAMINE SULFATE [Concomitant]
     Dosage: 300 MG, ONCE
     Route: 042
     Dates: start: 20070604, end: 20070604
  9. ZOSYN [Concomitant]
     Dosage: UNK
     Dates: start: 20070604
  10. KEFZOL [Concomitant]
     Dosage: 1 GRAM ONCE
     Route: 042
     Dates: start: 20070604, end: 20070604
  11. FENTANYL [Concomitant]
     Dosage: 1000 MG, ONCE
     Route: 042
     Dates: start: 20070604, end: 20070604
  12. TRASYLOL [Suspect]
     Indication: CORONARY ARTERY BYPASS
     Dosage: 1 ML, ONCE, TEST DOSE
     Route: 042
     Dates: start: 20070604, end: 20070604
  13. KEFZOL [Concomitant]
     Dosage: 1 G, ONCE
     Route: 042
     Dates: start: 20070604, end: 20070604
  14. ACETYLSALICYLIC ACID SRT [Concomitant]
  15. HEPARIN [Concomitant]
     Dosage: 5000 U, ONCE BY CARDIOPULMONARY BYPASS PUMP
     Route: 042
     Dates: start: 20070604, end: 20070604
  16. HEPARIN [Concomitant]
     Dosage: UNK, INFUSION
     Route: 042
     Dates: start: 20070604, end: 20070604
  17. TRASYLOL [Suspect]
     Dosage: 50CCS/HR
     Route: 042
     Dates: start: 20070604, end: 20070604
  18. TRASYLOL [Suspect]
     Dosage: 200ML CARDIOPULMONARY BYPASS PUMP
     Route: 042
     Dates: start: 20070604, end: 20070604
  19. LISINOPRIL [Concomitant]
  20. PLAVIX [Concomitant]
  21. PLATELETS [Concomitant]
     Dosage: 60 ML, ONCE
     Route: 042
     Dates: start: 20070604, end: 20070604

REACTIONS (14)
  - ANXIETY [None]
  - FEAR [None]
  - RENAL INJURY [None]
  - ORGAN FAILURE [None]
  - INJURY [None]
  - CEREBROVASCULAR ACCIDENT [None]
  - CARDIAC DISORDER [None]
  - UNEVALUABLE EVENT [None]
  - PAIN [None]
  - ANHEDONIA [None]
  - RENAL FAILURE [None]
  - DEATH [None]
  - DEPRESSION [None]
  - RENAL IMPAIRMENT [None]
